FAERS Safety Report 8514919-3 (Version None)
Quarter: 2012Q3

REPORT INFORMATION
  Report Type: 
  Country: None (occurrence: None)
  Receive Date: 20120717
  Receipt Date: 20120703
  Transmission Date: 20120928
  Serious: Yes (Life-Threatening, Other)
  Sender: FDA-Public Use
  Company Number: GB-ROCHE-1085631

PATIENT
  Age: 61 Year
  Sex: Female

DRUGS (10)
  1. ACTIVASE [Suspect]
     Indication: THROMBOLYSIS
     Route: 042
     Dates: start: 20120524, end: 20120524
  2. RANITIDINE [Concomitant]
     Route: 048
  3. ZOLMITRIPTAN [Concomitant]
     Route: 048
  4. ATORVASTATIN [Concomitant]
     Route: 048
  5. BUDESONIDE [Concomitant]
     Dosage: ROUTE: INHALATION
  6. DILTIAZEM HCL [Concomitant]
     Route: 048
  7. PERINDOPRIL ERBUMINE [Concomitant]
     Route: 048
  8. FORMOTEROL FUMARATE [Concomitant]
     Dosage: ROUTE: INHALATION
  9. LANSOPRAZOLE [Concomitant]
     Route: 048
  10. ZOLMITRIPTAN [Concomitant]
     Indication: MIGRAINE
     Route: 048

REACTIONS (5)
  - CHOKING [None]
  - ANGIOEDEMA [None]
  - PARAESTHESIA [None]
  - SWOLLEN TONGUE [None]
  - LIP SWELLING [None]
